FAERS Safety Report 16902169 (Version 1)
Quarter: 2019Q4

REPORT INFORMATION
  Report Type: Spontaneous
  Country: US (occurrence: US)
  Receive Date: 20191010
  Receipt Date: 20191010
  Transmission Date: 20200122
  Serious: Yes (Other)
  Sender: FDA-Public Use
  Company Number: US-AMGEN-USASP2019164453

PATIENT
  Age: 72 Year
  Sex: Male
  Weight: 64.4 kg

DRUGS (6)
  1. METOPROLOL. [Concomitant]
     Active Substance: METOPROLOL
     Indication: HYPERTENSION
     Dosage: 12.5 MILLIGRAM, BID
     Route: 048
  2. PROCRIT [Suspect]
     Active Substance: ERYTHROPOIETIN
     Dosage: 20,000 UNITS, EVERY 3 TO 4 WEEKS
     Route: 058
     Dates: start: 2019, end: 2019
  3. PROCRIT [Suspect]
     Active Substance: ERYTHROPOIETIN
     Indication: NEPHROGENIC ANAEMIA
     Dosage: 20,000 UNITS, Q2WK
     Route: 058
     Dates: start: 20190514, end: 2019
  4. PROCRIT [Suspect]
     Active Substance: ERYTHROPOIETIN
     Dosage: 20,000 UNITS
     Route: 058
     Dates: start: 2019
  5. FUROSEMIDE. [Concomitant]
     Active Substance: FUROSEMIDE
     Indication: DIURETIC THERAPY
     Dosage: 10 MILLIGRAM, QD
     Route: 048
  6. VALSARTAN. [Concomitant]
     Active Substance: VALSARTAN
     Indication: HYPERTENSION
     Dosage: 75 MILLIGRAM, BID AS NEEDED
     Route: 048

REACTIONS (5)
  - Back pain [Recovered/Resolved]
  - Dyspnoea [Recovered/Resolved]
  - Transferrin saturation decreased [Recovered/Resolved]
  - Fatigue [Recovered/Resolved]
  - Blood iron decreased [Recovered/Resolved]

NARRATIVE: CASE EVENT DATE: 2019
